FAERS Safety Report 5258459-6 (Version None)
Quarter: 2007Q1

REPORT INFORMATION
  Report Type: 
  Country: None (occurrence: None)
  Receive Date: 20070308
  Receipt Date: 20070227
  Transmission Date: 20070707
  Serious: Yes (Hospitalization)
  Sender: FDA-Public Use
  Company Number: PHHO2006TW15663

PATIENT
  Age: 46 Year
  Sex: Male

DRUGS (2)
  1. RAD001A [Suspect]
     Indication: HEART TRANSPLANT
     Dosage: 0.25 MG, BID
     Route: 048
     Dates: start: 20060917
  2. NEORAL [Suspect]
     Indication: HEART TRANSPLANT
     Dosage: 50 MG, BID
     Route: 048

REACTIONS (3)
  - HAEMATEMESIS [None]
  - OESOPHAGITIS [None]
  - UPPER GASTROINTESTINAL HAEMORRHAGE [None]
